FAERS Safety Report 14672040 (Version 1)
Quarter: 2018Q1

REPORT INFORMATION
  Report Type: Report from Study
  Country: US (occurrence: US)
  Receive Date: 20180323
  Receipt Date: 20180323
  Transmission Date: 20180509
  Serious: Yes (Hospitalization)
  Sender: FDA-Public Use
  Company Number: US-ROCHE-2088359

PATIENT
  Age: 81 Year
  Sex: Male
  Weight: 79.83 kg

DRUGS (12)
  1. METOPROLOL. [Concomitant]
     Active Substance: METOPROLOL
     Indication: CORONARY ARTERY DISEASE
     Route: 065
     Dates: start: 2003
  2. TRASTUZUMAB. [Suspect]
     Active Substance: TRASTUZUMAB
     Indication: NON-SMALL CELL LUNG CANCER
     Dosage: LOADING DOSE
     Route: 042
     Dates: start: 20171221
  3. PANTOPRAZOLE [Concomitant]
     Active Substance: PANTOPRAZOLE
     Indication: GASTROOESOPHAGEAL REFLUX DISEASE
     Route: 065
     Dates: start: 2018
  4. LISINOPRIL. [Concomitant]
     Active Substance: LISINOPRIL
     Indication: CORONARY ARTERY DISEASE
     Route: 065
     Dates: start: 2015
  5. TRASTUZUMAB. [Suspect]
     Active Substance: TRASTUZUMAB
     Dosage: DATE OF MOST RECENT DOSE PRIOR TO ADVERSE EVENT: 21/FEB/2018?MAINTENANCE DOSE 484 MG
     Route: 042
  6. RANITIDINE. [Concomitant]
     Active Substance: RANITIDINE
     Indication: GASTROOESOPHAGEAL REFLUX DISEASE
     Route: 065
     Dates: start: 2000
  7. PERTUZUMAB. [Suspect]
     Active Substance: PERTUZUMAB
     Indication: NON-SMALL CELL LUNG CANCER
     Dosage: LOADING DOSE
     Route: 042
     Dates: start: 20171221
  8. NITROGLYCERIN. [Concomitant]
     Active Substance: NITROGLYCERIN
     Indication: CORONARY ARTERY DISEASE
     Route: 065
     Dates: start: 2003
  9. PERTUZUMAB. [Suspect]
     Active Substance: PERTUZUMAB
     Dosage: DATE OF MOST RECENT DOSE PRIOR TO ADVERSE EVENT: 21/FEB/2018?MAINTAINANCE DOSE
     Route: 042
  10. SIMVASTATIN. [Concomitant]
     Active Substance: SIMVASTATIN
     Indication: CORONARY ARTERY DISEASE
     Route: 065
     Dates: start: 2014
  11. SYMBICORT [Concomitant]
     Active Substance: BUDESONIDE\FORMOTEROL FUMARATE DIHYDRATE
     Indication: CHRONIC OBSTRUCTIVE PULMONARY DISEASE
     Dosage: DOSE: 2 PUFFS ONCE IN A DAY
     Route: 065
     Dates: start: 2017
  12. SPIRIVA [Concomitant]
     Active Substance: TIOTROPIUM BROMIDE MONOHYDRATE
     Indication: CHRONIC OBSTRUCTIVE PULMONARY DISEASE
     Dosage: DOSE: 18 MCG 1 PUFF ONCE IN A DAY
     Route: 065
     Dates: start: 2014

REACTIONS (1)
  - Respiratory failure [Recovered/Resolved]

NARRATIVE: CASE EVENT DATE: 20180306
